FAERS Safety Report 5218762-2 (Version None)
Quarter: 2007Q1

REPORT INFORMATION
  Report Type: 
  Country: None (occurrence: None)
  Receive Date: 20070123
  Receipt Date: 20061025
  Transmission Date: 20070707
  Serious: Yes (Hospitalization)
  Sender: FDA-Public Use
  Company Number: 15052

PATIENT
  Age: 61 Year
  Sex: Male

DRUGS (14)
  1. FLUOROURACIL [Suspect]
     Dates: start: 20060914
  2. FOLINIC ACID [Suspect]
     Dates: start: 20060914
  3. OXALIPLATIN [Suspect]
     Dates: start: 20060914
  4. BMS582664 [Suspect]
     Dosage: 600 MG DAILY PO
     Route: 048
     Dates: start: 20060907
  5. POTASSIUM ACETATE [Concomitant]
  6. SPIRONOLACTONE [Concomitant]
  7. IBUPROFEN [Concomitant]
  8. OCTREOTIDE ACETATE [Concomitant]
  9. LOTREL [Concomitant]
  10. METOPROLOL TARTRATE [Concomitant]
  11. DARBEPOETIN ALFA [Concomitant]
  12. METOCLOPRAMIDE [Concomitant]
  13. ONDANSETRON [Concomitant]
  14. TRIAMTERENE [Concomitant]

REACTIONS (8)
  - AORTIC THROMBOSIS [None]
  - CARDIOMYOPATHY [None]
  - DYSPNOEA [None]
  - EJECTION FRACTION DECREASED [None]
  - INTRACARDIAC THROMBUS [None]
  - PALPITATIONS [None]
  - TROPONIN INCREASED [None]
  - VENTRICULAR DYSFUNCTION [None]
